FAERS Safety Report 17438343 (Version 1)
Quarter: 2020Q1

REPORT INFORMATION
  Report Type: Report from Study
  Country: AU (occurrence: AU)
  Receive Date: 20200220
  Receipt Date: 20200220
  Transmission Date: 20200409
  Serious: Yes (Other)
  Sender: FDA-Public Use
  Company Number: AU-REGENERON PHARMACEUTICALS, INC.-2020-19923

PATIENT

DRUGS (2)
  1. EYLEA [Suspect]
     Active Substance: AFLIBERCEPT
     Indication: NEOVASCULAR AGE-RELATED MACULAR DEGENERATION
     Dosage: UNK UNK, Q4WK
     Route: 031
     Dates: start: 20180515
  2. EYLEA [Suspect]
     Active Substance: AFLIBERCEPT
     Dosage: Q4WK, UNKNOWN TOTAL INJECTIONS RECEIVED
     Route: 031
     Dates: start: 20200204

REACTIONS (3)
  - Retinal vascular occlusion [Unknown]
  - Meniere^s disease [Unknown]
  - Visual impairment [Unknown]

NARRATIVE: CASE EVENT DATE: 201912
